FAERS Safety Report 19778621 (Version 1)
Quarter: 2021Q3

REPORT INFORMATION
  Report Type: Spontaneous
  Country: US (occurrence: US)
  Receive Date: 20210902
  Receipt Date: 20210902
  Transmission Date: 20211014
  Serious: No
  Sender: FDA-Public Use
  Company Number: None

PATIENT
  Age: 32 Year
  Sex: Female
  Weight: 63 kg

DRUGS (3)
  1. XANAX [Concomitant]
     Active Substance: ALPRAZOLAM
  2. ESCITALOPRAM [Suspect]
     Active Substance: ESCITALOPRAM OXALATE
     Indication: ANXIETY
     Dosage: ?          QUANTITY:1 TABLET(S);?
     Route: 048
     Dates: start: 20210711, end: 20210901
  3. MAGNESIUM 400MG [Concomitant]
     Active Substance: MAGNESIUM

REACTIONS (6)
  - Nightmare [None]
  - Adverse reaction [None]
  - Violence-related symptom [None]
  - Intrusive thoughts [None]
  - Panic attack [None]
  - Condition aggravated [None]

NARRATIVE: CASE EVENT DATE: 20210711
